FAERS Safety Report 25274693 (Version 1)
Quarter: 2025Q2

REPORT INFORMATION
  Report Type: Spontaneous
  Country: US (occurrence: None)
  Receive Date: 20250506
  Receipt Date: 20250506
  Transmission Date: 20250716
  Serious: Yes (Disabling, Other)
  Sender: FDA-CTU
  Company Number: None

PATIENT
  Age: 55 Year
  Sex: Male
  Weight: 114.3 kg

DRUGS (15)
  1. LIDOCAINE [Suspect]
     Active Substance: LIDOCAINE
     Dates: start: 20250410, end: 20250410
  2. VALSARTAN [Concomitant]
     Active Substance: VALSARTAN
  3. HCTZ, [Concomitant]
  4. PREGABALIN [Concomitant]
     Active Substance: PREGABALIN
  5. Diltiazem ER, [Concomitant]
  6. Tadalafil, [Concomitant]
  7. Famotidine, [Concomitant]
  8. CELECOXIB [Concomitant]
     Active Substance: CELECOXIB
  9. Lorazepam, [Concomitant]
  10. SUMATRIPTAN [Concomitant]
     Active Substance: SUMATRIPTAN
  11. Magnesium, [Concomitant]
  12. pepto bismol, [Concomitant]
  13. Gas-X, [Concomitant]
  14. Vitamin D, [Concomitant]
  15. VITAMIN B COMPLEX [Concomitant]
     Active Substance: CYANOCOBALAMIN\DEXPANTHENOL\NIACINAMIDE\PYRIDOXINE HYDROCHLORIDE\RIBOFLAVIN 5^-PHOSPHATE SODIUM\THIA

REACTIONS (3)
  - Injection site pain [None]
  - Injection site swelling [None]
  - Injection site inflammation [None]

NARRATIVE: CASE EVENT DATE: 20250410
